FAERS Safety Report 6110717-9 (Version None)
Quarter: 2009Q1

REPORT INFORMATION
  Report Type: 
  Country: None (occurrence: None)
  Receive Date: 20090309
  Receipt Date: 20090303
  Transmission Date: 20090719
  Serious: Yes (Death)
  Sender: FDA-Public Use
  Company Number: ADE#09-028

PATIENT
  Age: 49 Year
  Sex: Male

DRUGS (9)
  1. TRAMADO HYDROCHLORIDE , 50MG CARACO/CARACO [Suspect]
  2. ALCOHOL [Concomitant]
  3. ATIVAN [Concomitant]
  4. CYCLOBENZAPRINE [Concomitant]
  5. KLONOPIN [Concomitant]
  6. METOPROLOL TARTRATE [Concomitant]
  7. REMERON [Concomitant]
  8. SEROQUEL [Concomitant]
  9. PAROXETINE HCL (PAXIL) [Concomitant]

REACTIONS (2)
  - ALCOHOL USE [None]
  - COMPLETED SUICIDE [None]
